FAERS Safety Report 11928083 (Version 2)
Quarter: 2016Q1

REPORT INFORMATION
  Report Type: Report from Study
  Country: US (occurrence: US)
  Receive Date: 20160119
  Receipt Date: 20160203
  Transmission Date: 20160526
  Serious: Yes (Death, Hospitalization)
  Sender: FDA-Public Use
  Company Number: US-AMGEN-USACT2016004112

PATIENT
  Age: 61 Year
  Sex: Male
  Weight: 58.9 kg

DRUGS (29)
  1. XGEVA [Concomitant]
     Active Substance: DENOSUMAB
     Dosage: 120 MG, UNK
     Dates: start: 20151223, end: 20151223
  2. CALCIUM [Concomitant]
     Active Substance: CALCIUM
     Dosage: 500-1000 MG, UNK
     Dates: start: 20150407
  3. BENZONATATE. [Concomitant]
     Active Substance: BENZONATATE
     Dosage: 200 MG, UNK
     Dates: start: 20150609
  4. LANCETAN [Concomitant]
     Dosage: UNK UNK, BID
  5. CLARITIN [Concomitant]
     Active Substance: LORATADINE
     Dosage: 10 MG, QD
     Route: 048
  6. METFORMIN [Concomitant]
     Active Substance: METFORMIN HYDROCHLORIDE
     Dosage: 400 MG, QD
     Route: 048
  7. LORAZEPAM. [Concomitant]
     Active Substance: LORAZEPAM
     Dosage: 0.5-1 MG, Q6H
     Dates: start: 20140407
  8. CODEINE [Concomitant]
     Active Substance: CODEINE
     Dosage: 10 MG, UNK
     Dates: start: 20150609
  9. MARINOL [Concomitant]
     Active Substance: DRONABINOL
     Dosage: UNK UNK, BID
     Route: 048
  10. ONDANSETRON [Concomitant]
     Active Substance: ONDANSETRON
     Dosage: 4-16 MG, UNK
     Dates: start: 20150729
  11. PROMETHAZINE W/CODEINE [Concomitant]
     Dosage: 6.25 MG, UNK
     Dates: start: 20150609
  12. TIOTROPIUM [Concomitant]
     Active Substance: TIOTROPIUM
     Dosage: 18 MUG, UNK
     Dates: start: 20150317
  13. ENSURE [Concomitant]
     Active Substance: AMINO ACIDS\DEXTROSE\ELECTROLYTES NOS\SOYBEAN OIL\VITAMINS
     Dosage: UNK UNK, TID
  14. POLYETHYLENE GLYCOL [Concomitant]
     Active Substance: POLYETHYLENE GLYCOLS
     Dosage: 17 G, QD
     Route: 048
  15. DENOSUMAB [Suspect]
     Active Substance: DENOSUMAB
     Indication: NON-SMALL CELL LUNG CANCER
     Dosage: 120 MG, UNK
     Route: 042
     Dates: start: 20150408, end: 20151111
  16. DEXAMETHASONE. [Concomitant]
     Active Substance: DEXAMETHASONE
     Dosage: 4 MG, Q6H
     Route: 048
     Dates: start: 20150407
  17. FOLIC ACID. [Concomitant]
     Active Substance: FOLIC ACID
     Dosage: 1 MG, UNK
     Dates: start: 20150407
  18. MAG-OX [Concomitant]
     Active Substance: MAGNESIUM OXIDE
     Dosage: 400 MG, BID
     Route: 048
  19. ORAMORPH SR SUSTAINED RELEASE [Concomitant]
     Active Substance: MORPHINE SULFATE
     Dosage: 60 MG, BID
     Route: 048
  20. FLUTICASONE [Concomitant]
     Active Substance: FLUTICASONE\FLUTICASONE PROPIONATE
     Dosage: 100 MG, UNK
     Dates: start: 20150304
  21. ADVAIR HFA [Concomitant]
     Active Substance: FLUTICASONE PROPIONATE\SALMETEROL XINAFOATE
     Dosage: UNK
  22. ALBUTEROL                          /00139501/ [Concomitant]
     Active Substance: ALBUTEROL
     Dosage: 90 MUG, UNK
     Dates: start: 20150317
  23. VITAMIN B12 [Concomitant]
     Active Substance: CYANOCOBALAMIN
     Dosage: 500 MG, QD
     Route: 048
     Dates: start: 20150522
  24. KLOR-CON M20 [Concomitant]
     Active Substance: POTASSIUM CHLORIDE
     Dosage: 20 MEQ, BID
     Route: 048
  25. ZOLEDRONIC ACID [Concomitant]
     Active Substance: ZOLEDRONIC ACID
     Dosage: 4 MG, UNK
     Dates: start: 20150408, end: 20151111
  26. VITAMIN D                          /00107901/ [Concomitant]
     Active Substance: ERGOCALCIFEROL
     Dosage: 200-400 IU, UNK
     Dates: start: 20150407
  27. PROCHLORPERAZINE. [Concomitant]
     Active Substance: PROCHLORPERAZINE
     Dosage: 10 MG, Q6H
     Dates: start: 20150407
  28. SALMETEROL [Concomitant]
     Active Substance: SALMETEROL
     Dosage: 1 MUG, UNK
     Dates: start: 20150304
  29. OXYCODONE [Concomitant]
     Active Substance: OXYCODONE
     Dosage: 5 MG, Q4H
     Route: 048
     Dates: start: 20150304

REACTIONS (2)
  - Mental status changes [Fatal]
  - Seizure [Recovered/Resolved]

NARRATIVE: CASE EVENT DATE: 20160111
